FAERS Safety Report 17570192 (Version 1)
Quarter: 2020Q1

REPORT INFORMATION
  Report Type: Spontaneous
  Country: US (occurrence: US)
  Receive Date: 20200316
  Receipt Date: 20200316
  Transmission Date: 20200409
  Serious: No
  Sender: FDA-Public Use
  Company Number: None

PATIENT
  Age: 25 Year
  Sex: Male
  Weight: 62.55 kg

DRUGS (3)
  1. PREGNENOLONE [Concomitant]
     Active Substance: PREGNENOLONE
  2. FLONASE [Concomitant]
     Active Substance: FLUTICASONE PROPIONATE
  3. CLOSYS FLUORIDE RINSE [Suspect]
     Active Substance: SODIUM FLUORIDE
     Indication: BREATH ODOUR
     Dosage: ?          QUANTITY:1 CAPFULL;?
     Route: 048
     Dates: start: 20200310, end: 20200310

REACTIONS (3)
  - Dyspepsia [None]
  - Abdominal pain upper [None]
  - Pain [None]

NARRATIVE: CASE EVENT DATE: 20200310
